FAERS Safety Report 21914685 (Version 3)
Quarter: 2023Q1

REPORT INFORMATION
  Report Type: Report from Study
  Country: CA (occurrence: CA)
  Receive Date: 20230126
  Receipt Date: 20230323
  Transmission Date: 20230418
  Serious: Yes (Hospitalization, Other)
  Sender: FDA-Public Use
  Company Number: CA-ABBVIE-4282100

PATIENT
  Sex: Male

DRUGS (3)
  1. VENCLEXTA [Suspect]
     Active Substance: VENETOCLAX
     Indication: Acute myeloid leukaemia
     Route: 048
     Dates: start: 20221205
  2. VENCLEXTA [Suspect]
     Active Substance: VENETOCLAX
     Indication: Acute myeloid leukaemia
     Route: 048
  3. VIDAZA [Concomitant]
     Active Substance: AZACITIDINE
     Indication: Product used for unknown indication

REACTIONS (10)
  - Myocardial infarction [Unknown]
  - Ulcer [Unknown]
  - Oropharyngeal pain [Unknown]
  - Sepsis [Unknown]
  - Gastrooesophageal reflux disease [Unknown]
  - Swelling face [Unknown]
  - Inflammation [Unknown]
  - Chest pain [Unknown]
  - Lip swelling [Unknown]
  - Pericarditis [Unknown]
